FAERS Safety Report 23520800 (Version 1)
Quarter: 2024Q1

REPORT INFORMATION
  Report Type: Spontaneous
  Country: CA (occurrence: CA)
  Receive Date: 20240214
  Receipt Date: 20240214
  Transmission Date: 20240409
  Serious: Yes (Hospitalization)
  Sender: FDA-Public Use
  Company Number: CA-CELLTRION INC.-2024CA003550

PATIENT

DRUGS (1)
  1. INFLECTRA [Suspect]
     Active Substance: INFLIXIMAB-DYYB
     Indication: Crohn^s disease
     Dosage: 600 MG, EVERY 4 WEEKS (RECEIVING HER INFLECTRA IN HOSPITAL)
     Route: 042
     Dates: start: 20201119

REACTIONS (3)
  - Foreign body [Unknown]
  - Localised infection [Unknown]
  - Arthritis infective [Unknown]
